FAERS Safety Report 19680054 (Version 2)
Quarter: 2022Q2

REPORT INFORMATION
  Report Type: Spontaneous
  Country: US (occurrence: US)
  Receive Date: 20210809
  Receipt Date: 20220607
  Transmission Date: 20220721
  Serious: Yes (Other)
  Sender: FDA-Public Use
  Company Number: US-SUN PHARMACEUTICAL INDUSTRIES LTD-2021R1-307175

PATIENT
  Age: 54 Year
  Sex: Female

DRUGS (1)
  1. TOPIRAMATE [Suspect]
     Active Substance: TOPIRAMATE
     Indication: Back pain
     Dosage: UNK
     Route: 065

REACTIONS (2)
  - Angle closure glaucoma [Recovering/Resolving]
  - Myopia [Unknown]
